FAERS Safety Report 15372659 (Version 1)
Quarter: 2018Q3

REPORT INFORMATION
  Report Type: Report from Study
  Country: None (occurrence: US)
  Receive Date: 20180912
  Receipt Date: 20180912
  Transmission Date: 20181010
  Serious: Yes (Other)
  Sender: FDA-Public Use
  Company Number: US-ABBVIE-18K-163-2479903-00

PATIENT
  Sex: Female

DRUGS (1)
  1. VENCLEXTA [Suspect]
     Active Substance: VENETOCLAX
     Indication: B-CELL LYMPHOMA
     Dosage: AS DIRECTED
     Route: 048
     Dates: start: 20180815, end: 2018

REACTIONS (2)
  - Renal failure [Unknown]
  - Organ failure [Unknown]

NARRATIVE: CASE EVENT DATE: 2018
